FAERS Safety Report 6703753-2 (Version None)
Quarter: 2010Q2

REPORT INFORMATION
  Report Type: 
  Country: None (occurrence: None)
  Receive Date: 20100428
  Receipt Date: 20100323
  Transmission Date: 20101027
  Serious: Yes (Hospitalization)
  Sender: FDA-Public Use
  Company Number: 003670

PATIENT
  Sex: Male
  Weight: 76 kg

DRUGS (2)
  1. CERTOLIZUMAB PEGOL (CERTOLIZUMAB PEGOL) [Suspect]
     Indication: CROHN'S DISEASE
     Dosage: 400 MG 1X/MONTH SUBCUTANEOUS, (400 MG 1X/2 WEEKS, STUDY -032; 3 DOSES OF CDP870 THEN PLACEBO
     Route: 058
     Dates: start: 20040601, end: 20040616
  2. CERTOLIZUMAB PEGOL (CERTOLIZUMAB PEGOL) [Suspect]
     Indication: CROHN'S DISEASE
     Dosage: 400 MG 1X/MONTH SUBCUTANEOUS, (400 MG 1X/2 WEEKS, STUDY -032; 3 DOSES OF CDP870 THEN PLACEBO
     Route: 058
     Dates: start: 20041130, end: 20090624

REACTIONS (4)
  - CROHN'S DISEASE [None]
  - ENTEROCOLONIC FISTULA [None]
  - ILEAL STENOSIS [None]
  - OEDEMA [None]
